FAERS Safety Report 9614595 (Version 1)
Quarter: 2013Q4

REPORT INFORMATION
  Report Type: Spontaneous
  Country: US (occurrence: None)
  Receive Date: 20131009
  Receipt Date: 20131009
  Transmission Date: 20140711
  Serious: No
  Sender: FDA-Public Use
  Company Number: None

PATIENT
  Sex: 0

DRUGS (1)
  1. ARIMIDEX [Suspect]
     Dosage: ~4 MONTHS  6-1 THRU 10-1?1 MG DAILY  P.O.
     Route: 048

REACTIONS (1)
  - Syncope [None]
